FAERS Safety Report 25689679 (Version 3)
Quarter: 2025Q3

REPORT INFORMATION
  Report Type: Report from Study
  Country: US (occurrence: US)
  Receive Date: 20250818
  Receipt Date: 20250914
  Transmission Date: 20251021
  Serious: No
  Sender: ABBVIE
  Company Number: US-ABBVIE-6365517

PATIENT
  Age: 55 Year
  Sex: Female
  Weight: 59 kg

DRUGS (1)
  1. QULIPTA [Suspect]
     Active Substance: ATOGEPANT
     Indication: Product used for unknown indication
     Dosage: DOSE: 1 PILL PER DAY
     Route: 048
     Dates: start: 202507

REACTIONS (2)
  - Malaise [Unknown]
  - Migraine [Not Recovered/Not Resolved]

NARRATIVE: CASE EVENT DATE: 20250101
